FAERS Safety Report 8302306-2 (Version None)
Quarter: 2012Q1

REPORT INFORMATION
  Report Type: 
  Country: None (occurrence: None)
  Receive Date: 20120326
  Receipt Date: 20110217
  Transmission Date: 20120608
  Serious: Yes (Disabling, Other)
  Sender: FDA-Public Use
  Company Number: PHHY2010US72008

PATIENT
  Age: 51 Year
  Sex: Female
  Weight: 116 kg

DRUGS (7)
  1. OXYCONTIN [Concomitant]
  2. TOPAMAX [Concomitant]
  3. VIVELLE-DOT [Suspect]
     Indication: MENOPAUSAL SYMPTOMS
     Dosage: TRANSDERMAL ; 0.075, TWICE PER WEEK, TRANSDERMAL
     Route: 062
  4. TRAMADOL HCL [Concomitant]
  5. CYTOMEL [Concomitant]
  6. LEVOXYL [Concomitant]
  7. THYROID MEDICATIONS [Concomitant]

REACTIONS (1)
  - MIGRAINE [None]
